FAERS Safety Report 6826281-2 (Version None)
Quarter: 2010Q3

REPORT INFORMATION
  Report Type: 
  Country: None (occurrence: None)
  Receive Date: 20100709
  Receipt Date: 20100629
  Transmission Date: 20110219
  Serious: Yes (Other)
  Sender: FDA-Public Use
  Company Number: US-PFIZER INC-2010081964

PATIENT
  Sex: Female
  Weight: 74.83 kg

DRUGS (13)
  1. XANAX [Suspect]
     Indication: NEUROPATHY PERIPHERAL
     Dosage: 1 MG, 3X/DAY
  2. LYRICA [Suspect]
     Indication: NEUROPATHY PERIPHERAL
     Dosage: 150 MG, 2X/DAY
     Route: 048
     Dates: start: 20100525
  3. GABAPENTIN [Suspect]
     Indication: NEUROPATHY PERIPHERAL
     Dosage: 1200 MG, 5X/DAY
  4. METHOCARBAMOL [Concomitant]
     Dosage: 500 MG, 4X/DAY
  5. ALBUTEROL [Concomitant]
     Dosage: 2 PUFFS, 4X/DAY
     Route: 055
  6. CLOBETASOL [Concomitant]
     Dosage: 0.05 %, 2X/DAY
     Route: 061
  7. MODAFINIL [Concomitant]
     Dosage: 200 MG, 1X/DAY
  8. ZOCOR [Concomitant]
     Dosage: 20 MG, 1X/DAY
  9. CYMBALTA [Concomitant]
     Dosage: 30 MG, 1X/DAY
  10. AMBIEN [Concomitant]
     Indication: SLEEP DISORDER
     Dosage: 12.5 MG, AS NEEDED
  11. NATALIZUMAB [Concomitant]
     Dosage: 300/15, UNK
     Route: 042
  12. REVIA [Concomitant]
     Dosage: 50 MG, 1X/DAY
  13. FLEXERIL [Concomitant]
     Dosage: 10 MG, 1X/DAY

REACTIONS (3)
  - DRUG ADMINISTRATION ERROR [None]
  - DRUG INEFFECTIVE [None]
  - PAIN [None]
